FAERS Safety Report 8875534 (Version 1)
Quarter: 2012Q4

REPORT INFORMATION
  Report Type: 
  Country: US (occurrence: US)
  Receive Date: 20121023
  Receipt Date: 20121023
  Transmission Date: 20130627
  Serious: Yes (Hospitalization)
  Sender: FDA-Public Use
  Company Number: US-MEDICIS-2012P1060866

PATIENT
  Age: 30 Year
  Sex: Female
  Weight: 70.31 kg

DRUGS (2)
  1. ZIANA [Suspect]
     Route: 061
     Dates: start: 201206, end: 2012
  2. ZIANA [Suspect]
     Route: 061
     Dates: start: 201206, end: 2012

REACTIONS (13)
  - Drug ineffective [Recovered/Resolved]
  - Off label use [Unknown]
  - Acne [Recovered/Resolved]
  - Chest pain [Recovering/Resolving]
  - Heart rate irregular [Recovering/Resolving]
  - Disturbance in attention [Recovering/Resolving]
  - Asthenia [Recovering/Resolving]
  - Depressed mood [Recovering/Resolving]
  - Hyperhidrosis [Recovering/Resolving]
  - Tremor [Recovering/Resolving]
  - Product physical issue [None]
  - Product odour abnormal [None]
  - Hypothyroidism [None]
